FAERS Safety Report 16245040 (Version 1)
Quarter: 2019Q2

REPORT INFORMATION
  Report Type: Spontaneous
  Country: JP (occurrence: JP)
  Receive Date: 20190426
  Receipt Date: 20190426
  Transmission Date: 20190711
  Serious: Yes (Death)
  Sender: FDA-Public Use
  Company Number: JP-MTPC-MTPC2019-0006067

PATIENT

DRUGS (14)
  1. SOLYUGEN F [Concomitant]
     Active Substance: CALCIUM CHLORIDE\POTASSIUM CHLORIDE\SODIUM ACETATE\SODIUM CHLORIDE
     Route: 065
  2. EDIROL [Concomitant]
     Active Substance: ELDECALCITOL
     Route: 048
  3. IOPAMIDOL [Concomitant]
     Active Substance: IOPAMIDOL
     Route: 051
  4. GRTPA INJ. 6 MIU [Suspect]
     Active Substance: ALTEPLASE
     Indication: CEREBELLAR INFARCTION
     Dosage: 22 MILLILITER, QD
     Route: 042
     Dates: start: 20190211
  5. RADICUT BAG FOR I.V. INFUSION 30MG [Suspect]
     Active Substance: EDARAVONE
     Route: 041
  6. TRANSAMIN [Concomitant]
     Active Substance: TRANEXAMIC ACID
     Route: 051
  7. ARICEPT [Concomitant]
     Active Substance: DONEPEZIL HYDROCHLORIDE
     Route: 048
  8. QUETIAPINE. [Concomitant]
     Active Substance: QUETIAPINE
     Route: 048
  9. PRIMPERAN [Concomitant]
     Active Substance: METOCLOPRAMIDE HYDROCHLORIDE
     Route: 051
  10. NICARDIPINE HYDROCHLORIDE. [Concomitant]
     Active Substance: NICARDIPINE HYDROCHLORIDE
     Route: 051
  11. TAKEPRON [Concomitant]
     Active Substance: LANSOPRAZOLE
     Route: 042
  12. ISOTONIC SODIUM CHLORIDE SOLUTION [Concomitant]
     Active Substance: SODIUM CHLORIDE
     Route: 051
  13. CARBAZOCHROME SODIUM SULFONATE [Concomitant]
     Active Substance: CARBAZOCHROME SODIUM SULFONATE
     Dosage: UNK
     Route: 042
  14. CALONAL [Concomitant]
     Active Substance: ACETAMINOPHEN
     Route: 048

REACTIONS (1)
  - Cerebral haemorrhage [Fatal]

NARRATIVE: CASE EVENT DATE: 20190211
